FAERS Safety Report 9294758 (Version 3)
Quarter: 2013Q3

REPORT INFORMATION
  Report Type: Report from Study
  Country: US (occurrence: US)
  Receive Date: 20130517
  Receipt Date: 20130715
  Transmission Date: 20140515
  Serious: Yes (Life-Threatening, Hospitalization)
  Sender: FDA-Public Use
  Company Number: US-ROCHE-1224951

PATIENT
  Age: 78 Year
  Sex: Male
  Weight: 51.71 kg

DRUGS (12)
  1. TRASTUZUMAB [Suspect]
     Indication: GASTRIC CANCER
     Dosage: LOADING DOSE
     Route: 042
     Dates: start: 20130129
  2. TRASTUZUMAB [Suspect]
     Dosage: MAINTAINS DOSE, DATE OF MOST RECENT DOSE (324 MG) PRIOR TO SAE:25/APR/2013
     Route: 042
  3. CAPECITABINE [Suspect]
     Indication: GASTRIC CANCER
     Dosage: DATE OF MOST RECENT DOSE (1000 MG) PRIOR TO SAE:26/APR/2013
     Route: 048
     Dates: start: 20130129
  4. CISPLATIN [Suspect]
     Indication: GASTRIC CANCER
     Dosage: DATE OF MOST RECENT DOSE (89 MG) PRIOR TO SAE:25/APR/2013
     Route: 042
     Dates: start: 20130129
  5. DECADRON [Concomitant]
     Indication: NAUSEA
     Route: 065
     Dates: start: 20130129
  6. ALOXI [Concomitant]
     Indication: NAUSEA
     Route: 065
     Dates: start: 20130129
  7. VOLTAREN [Concomitant]
     Indication: PAIN
  8. LUNESTA [Concomitant]
     Indication: SLEEP DISORDER
  9. LACTULOSE [Concomitant]
     Indication: CONSTIPATION
     Route: 065
     Dates: start: 20130103
  10. MILK OF MAGNESIA [Concomitant]
     Indication: CONSTIPATION
     Route: 065
     Dates: start: 20130103
  11. MELOXICAM [Concomitant]
     Indication: MULTIPLE SCLEROSIS
  12. OXCARBAZEPINE [Concomitant]
     Indication: MULTIPLE SCLEROSIS

REACTIONS (1)
  - Cerebrovascular accident [Recovering/Resolving]
